FAERS Safety Report 14015745 (Version 2)
Quarter: 2017Q4

REPORT INFORMATION
  Report Type: Spontaneous
  Country: FR (occurrence: FR)
  Receive Date: 20170927
  Receipt Date: 20171204
  Transmission Date: 20180321
  Serious: Yes (Death)
  Sender: FDA-Public Use
  Company Number: FR-JNJFOC-20170925173

PATIENT
  Sex: Female

DRUGS (1)
  1. ZYTIGA [Suspect]
     Active Substance: ABIRATERONE ACETATE
     Indication: BREAST CANCER
     Dosage: STRENGTH: 250 MG
     Route: 048
     Dates: start: 201504, end: 201604

REACTIONS (3)
  - Off label use [Unknown]
  - Hepatotoxicity [Fatal]
  - Product use in unapproved indication [Unknown]
